FAERS Safety Report 12109363 (Version 1)
Quarter: 2016Q1

REPORT INFORMATION
  Report Type: Spontaneous
  Country: US (occurrence: None)
  Receive Date: 20160223
  Receipt Date: 20160223
  Transmission Date: 20160526
  Serious: Yes (Other)
  Sender: FDA-Public Use
  Company Number: None

PATIENT
  Age: 36 Year
  Sex: Female
  Weight: 64.86 kg

DRUGS (7)
  1. PLEXUS BIO CLEANSE [Concomitant]
  2. BENZOYL PEROXIDE 2.5% CLINIQUE [Suspect]
     Active Substance: BENZOYL PEROXIDE
     Indication: ACNE
  3. OMEPRAZOLE. [Concomitant]
     Active Substance: OMEPRAZOLE
  4. IRON [Concomitant]
     Active Substance: IRON
  5. CALCIUM [Concomitant]
     Active Substance: CALCIUM
  6. PROBIOTIC [Concomitant]
     Active Substance: PROBIOTICS NOS
  7. ZYRTEC [Concomitant]
     Active Substance: CETIRIZINE HYDROCHLORIDE

REACTIONS (11)
  - Erythema [None]
  - Drug hypersensitivity [None]
  - Dyspnoea [None]
  - Skin irritation [None]
  - Pharyngeal oedema [None]
  - Pruritus [None]
  - Throat tightness [None]
  - Local swelling [None]
  - Eye swelling [None]
  - Swelling face [None]
  - Pruritus generalised [None]

NARRATIVE: CASE EVENT DATE: 20160209
